FAERS Safety Report 8155515-X (Version None)
Quarter: 2012Q1

REPORT INFORMATION
  Report Type: 
  Country: None (occurrence: None)
  Receive Date: 20120222
  Receipt Date: 20120214
  Transmission Date: 20120608
  Serious: Yes (Hospitalization, Other)
  Sender: FDA-Public Use
  Company Number: US-BAYER-2011-027442

PATIENT
  Age: 31 Year
  Sex: Female
  Weight: 48 kg

DRUGS (5)
  1. PREMARIN [Concomitant]
  2. YAZ [Suspect]
     Indication: POSTMENOPAUSE
  3. YAZ [Suspect]
     Indication: PREMENSTRUAL SYNDROME
  4. YAZ [Suspect]
     Indication: MENORRHAGIA
     Dosage: UNK
     Dates: start: 20090301, end: 20100501
  5. YAZ [Suspect]
     Indication: FEMALE STERILISATION

REACTIONS (8)
  - EMOTIONAL DISTRESS [None]
  - PELVIC HAEMATOMA [None]
  - DEEP VEIN THROMBOSIS [None]
  - HAEMORRHAGIC DISORDER [None]
  - ANXIETY [None]
  - GENERAL PHYSICAL HEALTH DETERIORATION [None]
  - PAIN [None]
  - INJURY [None]
